FAERS Safety Report 5006296-X (Version None)
Quarter: 2006Q2

REPORT INFORMATION
  Report Type: 
  Country: None (occurrence: None)
  Receive Date: 20060516
  Receipt Date: 20060508
  Transmission Date: 20061013
  Serious: Yes (Hospitalization, Other)
  Sender: FDA-Public Use
  Company Number: US-2006-002083

PATIENT
  Age: 58 Year
  Sex: Female
  Weight: 46.7 kg

DRUGS (1)
  1. BETASERON [Suspect]
     Indication: MULTIPLE SCLEROSIS
     Dosage: 8 MIU EVERY 2D SUBCUTANEOUS
     Route: 058
     Dates: start: 20040406, end: 20060109

REACTIONS (4)
  - ANOREXIA [None]
  - DEHYDRATION [None]
  - DEPRESSION [None]
  - WEIGHT DECREASED [None]
